FAERS Safety Report 22376458 (Version 2)
Quarter: 2024Q4

REPORT INFORMATION
  Report Type: Spontaneous
  Country: DE (occurrence: DE)
  Receive Date: 20230528
  Receipt Date: 20241009
  Transmission Date: 20250115
  Serious: Yes (Death, Hospitalization, Other)
  Sender: AUROBINDO
  Company Number: DE-CELLTRION HEALTHCARE HUNGARY KFT-2023DE009907

PATIENT
  Age: 60 Year
  Sex: Female
  Weight: 72.5 kg

DRUGS (36)
  1. LEUCOVORIN CALCIUM [Suspect]
     Active Substance: LEUCOVORIN CALCIUM
     Indication: Neoplasm
     Dosage: EVERY 2 WEEKS
     Route: 042
     Dates: start: 20230201
  2. IRINOTECAN [Suspect]
     Active Substance: IRINOTECAN
     Indication: Neoplasm
     Dosage: UNK
     Dates: start: 20230201
  3. IRINOTECAN [Suspect]
     Active Substance: IRINOTECAN
     Dosage: 187 MILLIGRAM, 2 WEEK (DOSE OF LAST ADMINISTERED PRIOR TO AE/SAE ONSET: 187 MG DATE OF MOST RECENT D
     Dates: start: 20221102, end: 20230201
  4. BEVACIZUMAB [Suspect]
     Active Substance: BEVACIZUMAB
     Indication: Neoplasm
     Dosage: 350 MILLIGRAM, EVERY 2 WEEKS
     Route: 042
     Dates: start: 20221102, end: 20230101
  5. FLUOROURACIL [Suspect]
     Active Substance: FLUOROURACIL
     Indication: Neoplasm malignant
     Dosage: EVERY 2 WEEKS
     Route: 042
  6. FLUOROURACIL [Suspect]
     Active Substance: FLUOROURACIL
     Dosage: 2076 MILLIGRAM, 2 WEEK (DATE OF MOST RECENT DOSE OF PRIOR TO AE/SAE ONSET: 01/02/2023)
     Route: 042
     Dates: start: 20221102, end: 20230201
  7. LEUCOVORIN [Suspect]
     Active Substance: LEUCOVORIN\LEUCOVORIN CALCIUM
     Indication: Neoplasm malignant
     Dosage: 692 MILLIGRAM, 2 WEEK (DATE OF MOST RECENT DOSE PRIOR TO AE/SAE ONSET: 01/FEB/2023, 692 MG EVERY 2 W
     Route: 042
     Dates: start: 20221102, end: 20230201
  8. LEUCOVORIN CALCIUM [Suspect]
     Active Substance: LEUCOVORIN CALCIUM
     Indication: Neoplasm
     Dosage: UNK, EVERY 2 WEEKS
     Route: 042
     Dates: start: 20230201
  9. ATORVASTATIN [Concomitant]
     Active Substance: ATORVASTATIN
     Indication: Product used for unknown indication
     Dosage: UNK
     Route: 065
  10. CANDESARTAN [Concomitant]
     Active Substance: CANDESARTAN
     Indication: Product used for unknown indication
     Dosage: UNK
     Route: 065
  11. CITALOPRAM [Concomitant]
     Active Substance: CITALOPRAM
     Indication: Product used for unknown indication
     Dosage: UNK
     Route: 065
  12. CHOLECALCIFEROL [Concomitant]
     Active Substance: CHOLECALCIFEROL
     Indication: Product used for unknown indication
     Dosage: UNK
     Route: 065
  13. ELIQUIS [Concomitant]
     Active Substance: APIXABAN
     Indication: Product used for unknown indication
     Dosage: UNK
     Route: 065
  14. FUROSEMIDE [Concomitant]
     Active Substance: FUROSEMIDE
     Indication: Product used for unknown indication
     Dosage: UNK
     Route: 065
  15. LOPERAMIDE [Concomitant]
     Active Substance: LOPERAMIDE
     Indication: Product used for unknown indication
     Dosage: UNK
     Route: 065
  16. LERCANIDIPINE [Concomitant]
     Active Substance: LERCANIDIPINE
     Indication: Product used for unknown indication
     Dosage: UNK
     Route: 065
  17. METOCLOPRAMIDE [Concomitant]
     Active Substance: METOCLOPRAMIDE
     Indication: Product used for unknown indication
     Dosage: UNK
     Route: 065
  18. METAMIZOLE [Concomitant]
     Active Substance: METAMIZOLE
     Indication: Product used for unknown indication
     Dosage: UNK
     Route: 065
  19. ONDANSETRON [Concomitant]
     Active Substance: ONDANSETRON
     Indication: Product used for unknown indication
     Dosage: UNK
     Route: 065
  20. PANTOPRAZOLE SODIUM [Concomitant]
     Active Substance: PANTOPRAZOLE SODIUM
     Indication: Product used for unknown indication
     Dosage: UNK
     Route: 065
  21. FERROUS SULFATE [Concomitant]
     Active Substance: FERROUS SULFATE
     Indication: Product used for unknown indication
     Dosage: UNK
     Route: 065
  22. DIMENHYDRINATE [Concomitant]
     Active Substance: DIMENHYDRINATE
     Indication: Nausea
     Dosage: 6.2 MILLIGRAM/MILLILITRE
     Route: 065
     Dates: start: 20230304
  23. ALBUMIN HUMAN [Concomitant]
     Active Substance: ALBUMIN HUMAN
     Indication: Product used for unknown indication
     Dosage: UNK
     Route: 065
     Dates: start: 20230217
  24. SPIRONOLACTONE [Concomitant]
     Active Substance: SPIRONOLACTONE
     Indication: Product used for unknown indication
     Dosage: 12.5 MILLIGRAM (12.5 MG, 1 DAY)
     Route: 065
     Dates: start: 20221223
  25. POTASSIUM [Concomitant]
     Active Substance: POTASSIUM
     Indication: Blood potassium increased
     Dosage: 20 MILLIMOLE (20 MMOL (0.33 DAY))
     Route: 065
     Dates: start: 20230213
  26. LANTUS [Concomitant]
     Active Substance: INSULIN GLARGINE
     Indication: Diabetes mellitus
     Dosage: 100IE PEN
     Route: 065
     Dates: start: 20230317
  27. HEPARIN SODIUM [Concomitant]
     Active Substance: HEPARIN SODIUM
     Indication: Product used for unknown indication
     Dosage: 5000IE (0.5 DAY)
     Route: 065
     Dates: start: 20230210
  28. FENTANYL CITRATE [Concomitant]
     Active Substance: FENTANYL CITRATE
     Indication: Pain
     Dosage: 100 MILLIGRAM
     Route: 065
     Dates: start: 20230306
  29. AMPHOTERICIN B [Concomitant]
     Active Substance: AMPHOTERICIN B
     Indication: Product used for unknown indication
     Dosage: 50 MILLIGRAM, ONCE A DAY (50 MG, EVERY 1 DAY)
     Route: 065
     Dates: start: 20230214
  30. NALOXONE [Concomitant]
     Active Substance: NALOXONE
     Indication: Pain
     Dosage: 2.5 MILLIGRAM, TWO TIMES A DAY (2.5 MG (0.5 DAY))
     Route: 065
     Dates: start: 20230304
  31. PROTAPHANE [Concomitant]
     Active Substance: INSULIN HUMAN
     Indication: Diabetes mellitus
     Dosage: 350 MILLIGRAM (DATE OF MOST RECENT DOSE PRIOR TO AE/SAE ONSET: 01/FEB/2023)
     Route: 042
     Dates: start: 20221102, end: 20230201
  32. PROTAPHANE [Concomitant]
     Active Substance: INSULIN HUMAN
     Indication: Neoplasm malignant
     Dosage: UNK
     Route: 065
     Dates: start: 20230315
  33. MORPHINE [Concomitant]
     Active Substance: MORPHINE
     Indication: Pain
     Dosage: 50 MILLIGRAM
     Route: 065
     Dates: start: 20230314, end: 20230317
  34. OXYCODONE [Concomitant]
     Active Substance: OXYCODONE
     Indication: Pain
     Dosage: 5 MILLIGRAM
     Route: 065
     Dates: start: 20230304, end: 20230308
  35. FENTANYL [Concomitant]
     Active Substance: FENTANYL
     Indication: Pain
     Dosage: 25 GRAM 25 G (0.33 WEEK)
     Route: 065
     Dates: start: 20230306, end: 20230312
  36. OLIMEL PERIFER N4E [Concomitant]
     Indication: Product used for unknown indication
     Dosage: UNK
     Route: 065
     Dates: start: 20230210, end: 20230317

REACTIONS (2)
  - Neoplasm malignant [Fatal]
  - Sepsis [Fatal]

NARRATIVE: CASE EVENT DATE: 20230210
